FAERS Safety Report 18967235 (Version 1)
Quarter: 2021Q1

REPORT INFORMATION
  Report Type: Spontaneous
  Country: GB (occurrence: GB)
  Receive Date: 20210304
  Receipt Date: 20210304
  Transmission Date: 20210420
  Serious: Yes (Hospitalization)
  Sender: FDA-Public Use
  Company Number: GB-TEVA-2021-GB-1884767

PATIENT
  Sex: Male

DRUGS (1)
  1. CINQAERO [Suspect]
     Active Substance: RESLIZUMAB
     Route: 042

REACTIONS (2)
  - Hospitalisation [Not Recovered/Not Resolved]
  - Malaise [Not Recovered/Not Resolved]
